FAERS Safety Report 14990501 (Version 1)
Quarter: 2018Q3

REPORT INFORMATION
  Report Type: Report from Study
  Country: RO (occurrence: RO)
  Receive Date: 20180608
  Receipt Date: 20180608
  Transmission Date: 20181010
  Serious: Yes (Hospitalization)
  Sender: FDA-Public Use
  Company Number: RO-EISAI MEDICAL RESEARCH-EC-2018-037315

PATIENT
  Age: 69 Year
  Sex: Male
  Weight: 74.7 kg

DRUGS (11)
  1. EVEROLIMUS. [Suspect]
     Active Substance: EVEROLIMUS
     Indication: CLEAR CELL RENAL CELL CARCINOMA
     Route: 048
     Dates: start: 20171208, end: 20180201
  2. LENVATINIB [Suspect]
     Active Substance: LENVATINIB
     Route: 048
     Dates: start: 20180405, end: 20180412
  3. INDAPAMIDUM [Concomitant]
  4. LENVATINIB [Suspect]
     Active Substance: LENVATINIB
     Route: 048
     Dates: start: 20180104, end: 20180201
  5. LENVATINIB [Suspect]
     Active Substance: LENVATINIB
     Indication: CLEAR CELL RENAL CELL CARCINOMA
     Route: 048
     Dates: start: 20171208, end: 20180103
  6. LENVATINIB [Suspect]
     Active Substance: LENVATINIB
     Route: 048
     Dates: start: 20180314, end: 20180319
  7. EVEROLIMUS. [Suspect]
     Active Substance: EVEROLIMUS
     Route: 048
     Dates: start: 20180215, end: 20180412
  8. NEBIVOLOLUM [Concomitant]
  9. ATORVASTATIN [Concomitant]
     Active Substance: ATORVASTATIN
  10. LENVATINIB [Suspect]
     Active Substance: LENVATINIB
     Route: 048
     Dates: start: 20180215, end: 20180313
  11. PERINDOPRILUM [Concomitant]

REACTIONS (4)
  - Cholecystitis infective [Recovered/Resolved]
  - Drug titration error [Recovered/Resolved]
  - Drug dispensing error [None]
  - Incorrect dose administered [None]

NARRATIVE: CASE EVENT DATE: 20180314
